FAERS Safety Report 7690321-1 (Version None)
Quarter: 2011Q3

REPORT INFORMATION
  Report Type: 
  Country: None (occurrence: None)
  Receive Date: 20110818
  Receipt Date: 20110809
  Transmission Date: 20111222
  Serious: Yes (Other)
  Sender: FDA-Public Use
  Company Number: US-GENZYME-THYM-1002696

PATIENT
  Age: 20 Month
  Sex: Male

DRUGS (3)
  1. MELPHALAN HYDROCHLORIDE [Concomitant]
     Indication: BONE MARROW CONDITIONING REGIMEN
  2. THYMOGLOBULIN [Suspect]
     Indication: BONE MARROW CONDITIONING REGIMEN
     Route: 042
  3. BUSULFAN [Concomitant]
     Indication: BONE MARROW CONDITIONING REGIMEN

REACTIONS (3)
  - NEUTROPHIL COUNT DECREASED [None]
  - MUCOSAL INFLAMMATION [None]
  - ENTEROCOCCAL BACTERAEMIA [None]
